FAERS Safety Report 9008611 (Version 1)
Quarter: 2013Q1

REPORT INFORMATION
  Report Type: Spontaneous
  Country: US (occurrence: US)
  Receive Date: 20130111
  Receipt Date: 20130111
  Transmission Date: 20140127
  Serious: Yes (Other)
  Sender: FDA-Public Use
  Company Number: US-PFIZER INC-2013011815

PATIENT
  Age: 62 Year
  Sex: Female
  Weight: 63.04 kg

DRUGS (5)
  1. LYRICA [Suspect]
     Indication: FIBROMYALGIA
     Dosage: 150 MG, 3X/DAY
     Route: 048
     Dates: start: 2012
  2. ROBAXIN [Concomitant]
     Dosage: UNK
  3. VALIUM [Concomitant]
     Dosage: 10 MG, UNK
  4. LISINOPRIL [Concomitant]
     Indication: HYPERTENSION
     Dosage: UNK
  5. AMLODIPINE [Concomitant]
     Indication: HYPERTENSION
     Dosage: UNK

REACTIONS (5)
  - Back injury [Unknown]
  - Limb discomfort [Unknown]
  - Hypoaesthesia [Unknown]
  - Gait disturbance [Unknown]
  - Inappropriate schedule of drug administration [Unknown]
